FAERS Safety Report 22859426 (Version 2)
Quarter: 2024Q3

REPORT INFORMATION
  Report Type: Spontaneous
  Country: US (occurrence: US)
  Receive Date: 20230824
  Receipt Date: 20240919
  Transmission Date: 20241017
  Serious: No
  Sender: SANOFI AVENTIS
  Company Number: US-SA-SAC20230822001332

PATIENT
  Age: 45 Year
  Sex: Female

DRUGS (1)
  1. DUPIXENT [Suspect]
     Active Substance: DUPILUMAB
     Indication: Dermatitis atopic
     Dosage: 300 MG, OTHER
     Route: 058
     Dates: start: 202305

REACTIONS (6)
  - Injection site nodule [Unknown]
  - Cough [Unknown]
  - Product dose omission issue [Unknown]
  - Pruritus [Unknown]
  - Injection site swelling [Unknown]
  - Injection site bruising [Unknown]

NARRATIVE: CASE EVENT DATE: 20230806
